FAERS Safety Report 8028906-5 (Version None)
Quarter: 2012Q1

REPORT INFORMATION
  Report Type: 
  Country: None (occurrence: None)
  Receive Date: 20120106
  Receipt Date: 20111229
  Transmission Date: 20120608
  Serious: Yes (Other)
  Sender: FDA-Public Use
  Company Number: ES-VIIV HEALTHCARE LIMITED-B0772966A

PATIENT
  Age: 3 Day
  Sex: Male
  Weight: 3 kg

DRUGS (3)
  1. RETROVIR [Suspect]
     Indication: CONGENITAL HIV INFECTION
     Dosage: 24MG PER DAY
     Route: 048
     Dates: start: 20111130
  2. EPIVIR [Suspect]
     Indication: CONGENITAL HIV INFECTION
     Dosage: 12MG PER DAY
     Route: 048
     Dates: start: 20111130
  3. VIRAMUNE [Suspect]
     Indication: CONGENITAL HIV INFECTION
     Dosage: 6MG PER DAY
     Route: 048
     Dates: start: 20111130, end: 20111202

REACTIONS (1)
  - HYPOCALCAEMIA [None]
